FAERS Safety Report 9226977 (Version 1)
Quarter: 2013Q2

REPORT INFORMATION
  Report Type: Spontaneous
  Country: BR (occurrence: BR)
  Receive Date: 20130412
  Receipt Date: 20130412
  Transmission Date: 20140414
  Serious: Yes (Other)
  Sender: FDA-Public Use
  Company Number: BR-AMGEN-BRASP2012062470

PATIENT
  Age: 78 Year
  Sex: Female
  Weight: 52 kg

DRUGS (6)
  1. ENBREL [Suspect]
     Indication: RHEUMATOID ARTHRITIS
     Dosage: 50 MG, 1X/WEEK
     Route: 058
     Dates: start: 201009, end: 201209
  2. METHOTREXATE [Concomitant]
     Dosage: 1 DF, WEEKLY
  3. NIMESULIDE [Concomitant]
     Dosage: UNK
     Dates: start: 2008
  4. FOLIC ACID [Concomitant]
     Dosage: UNK
     Dates: start: 2008
  5. ALENDRONATE [Concomitant]
     Dosage: UNK
  6. CALCIUM [Concomitant]
     Dosage: UNK

REACTIONS (2)
  - Mental disorder [Unknown]
  - Anaemia [Unknown]
